FAERS Safety Report 7361354-X (Version None)
Quarter: 2011Q1

REPORT INFORMATION
  Report Type: 
  Country: None (occurrence: None)
  Receive Date: 20110318
  Receipt Date: 20110307
  Transmission Date: 20110831
  Serious: Yes (Hospitalization)
  Sender: FDA-Public Use
  Company Number: B0706314A

PATIENT
  Age: 34 Year
  Sex: Female

DRUGS (3)
  1. CEFUROXIME [Suspect]
     Indication: BACTERIAL INFECTION
     Dosage: 250MG TWICE PER DAY
     Route: 048
  2. AZITHROMYCIN [Suspect]
     Indication: BACTERIAL INFECTION
     Dosage: 500MG PER DAY
     Route: 048
  3. FLUCONAZOLE [Concomitant]

REACTIONS (1)
  - TOXIC EPIDERMAL NECROLYSIS [None]
